FAERS Safety Report 16234713 (Version 2)
Quarter: 2019Q4

REPORT INFORMATION
  Report Type: Report from Study
  Country: AU (occurrence: AU)
  Receive Date: 20190424
  Receipt Date: 20191125
  Transmission Date: 20200122
  Serious: Yes (Hospitalization, Other)
  Sender: FDA-Public Use
  Company Number: AU-CELGENEUS-AUS-20190304367

PATIENT
  Age: 60 Year
  Sex: Male
  Weight: 52 kg

DRUGS (19)
  1. PONATINIB [Suspect]
     Active Substance: PONATINIB
     Indication: ACUTE MYELOID LEUKAEMIA
     Route: 048
     Dates: start: 20181029
  2. AZACITIDINE. [Suspect]
     Active Substance: AZACITIDINE
     Route: 058
     Dates: end: 20190317
  3. AZACITIDINE. [Suspect]
     Active Substance: AZACITIDINE
     Route: 058
     Dates: start: 20181025
  4. AMLODIPINE [Concomitant]
     Active Substance: AMLODIPINE BESYLATE
     Indication: PAIN IN EXTREMITY
  5. PANTOPRAZOLE [Concomitant]
     Active Substance: PANTOPRAZOLE
     Dosage: DOSE NOT PROVIDED
     Route: 065
     Dates: start: 2018, end: 20190710
  6. ONDANSETRON [Concomitant]
     Active Substance: ONDANSETRON
     Indication: PRODUCT USED FOR UNKNOWN INDICATION
     Dosage: DOSE NOT PROVIDED
     Route: 065
     Dates: start: 20181025
  7. AZACITIDINE. [Suspect]
     Active Substance: AZACITIDINE
     Indication: ACUTE MYELOID LEUKAEMIA
     Route: 058
     Dates: start: 20181025, end: 20190222
  8. METOCLOPRAMIDE. [Concomitant]
     Active Substance: METOCLOPRAMIDE
     Indication: PRODUCT USED FOR UNKNOWN INDICATION
     Dosage: DOSE NOT PROVIDED
     Route: 065
     Dates: start: 20181025
  9. CIPROFLOXACIN. [Concomitant]
     Active Substance: CIPROFLOXACIN
     Route: 065
     Dates: start: 20190403, end: 20190430
  10. PONATINIB [Suspect]
     Active Substance: PONATINIB
     Route: 048
     Dates: end: 20190310
  11. POSACONAZOLE [Concomitant]
     Active Substance: POSACONAZOLE
     Indication: SKIN LESION
     Dosage: DOSE NOT PROVIDED
     Route: 065
     Dates: end: 20190710
  12. PONATINIB [Suspect]
     Active Substance: PONATINIB
     Route: 048
     Dates: end: 20190407
  13. VALACICLOVIR [Concomitant]
     Active Substance: VALACYCLOVIR HYDROCHLORIDE
     Indication: PAIN IN EXTREMITY
     Dosage: DOSE NOT PROVIDED
     Route: 065
     Dates: start: 20190126, end: 20190710
  14. POSACONAZOLE [Concomitant]
     Active Substance: POSACONAZOLE
     Indication: DEEP VEIN THROMBOSIS
     Dosage: DOSE NOT PROVIDED
     Route: 065
     Dates: start: 20190102, end: 20190710
  15. POSACONAZOLE [Concomitant]
     Active Substance: POSACONAZOLE
     Indication: PAIN IN EXTREMITY
  16. AMLODIPINE [Concomitant]
     Active Substance: AMLODIPINE BESYLATE
     Indication: SKIN LESION
     Dosage: DOSE NOT PROVIDED
     Route: 065
     Dates: start: 1998
  17. CIPROFLOXACIN. [Concomitant]
     Active Substance: CIPROFLOXACIN
     Indication: PAIN IN EXTREMITY
     Dosage: DOSE NOT PROVIDED
     Route: 065
     Dates: start: 20190308, end: 20190312
  18. MOXONIDINE [Concomitant]
     Active Substance: MOXONIDINE
     Indication: PRODUCT USED FOR UNKNOWN INDICATION
     Dosage: DOSE NOT PROVIDED
     Route: 065
     Dates: start: 1998
  19. PANTOPRAZOLE [Concomitant]
     Active Substance: PANTOPRAZOLE
     Indication: PAIN IN EXTREMITY
     Dosage: DOSE NOT PROVIDED
     Route: 065
     Dates: start: 1998

REACTIONS (3)
  - Pain in extremity [Recovered/Resolved]
  - Skin lesion [Recovered/Resolved]
  - Deep vein thrombosis [Recovered/Resolved]

NARRATIVE: CASE EVENT DATE: 20190311
